FAERS Safety Report 25713782 (Version 2)
Quarter: 2025Q4

REPORT INFORMATION
  Report Type: Report from Study
  Country: US (occurrence: US)
  Receive Date: 20250822
  Receipt Date: 20251013
  Transmission Date: 20260117
  Serious: Yes (Other)
  Sender: JOHNSON AND JOHNSON
  Company Number: US-JNJFOC-20250824201

PATIENT
  Age: 22 Year
  Sex: Female

DRUGS (5)
  1. SPRAVATO [Suspect]
     Active Substance: ESKETAMINE
     Indication: Depression
     Dosage: ?84 MG, 54 TOTAL DOSES?
     Route: 045
     Dates: start: 20230110, end: 20240102
  2. SPRAVATO [Suspect]
     Active Substance: ESKETAMINE
     Dosage: ? , 1 TOTAL DOSES?
     Route: 045
     Dates: start: 20240109, end: 20240109
  3. SPRAVATO [Suspect]
     Active Substance: ESKETAMINE
     Dosage: ? 84 MG, 75 TOTAL DOSES?
     Route: 045
     Dates: start: 20240118, end: 20250805
  4. SPRAVATO [Suspect]
     Active Substance: ESKETAMINE
     Dosage: ? 84 MG, 1 TOTAL DOSES?
     Route: 045
     Dates: start: 20250819, end: 20250819
  5. SPRAVATO [Suspect]
     Active Substance: ESKETAMINE
     Dosage: ?56 MG, 2 TOTAL DOSES?
     Route: 045
     Dates: start: 20230103, end: 20230105

REACTIONS (2)
  - Dissociation [Recovered/Resolved]
  - Gait disturbance [Recovered/Resolved]

NARRATIVE: CASE EVENT DATE: 20250819
